FAERS Safety Report 18761764 (Version 1)
Quarter: 2021Q1

REPORT INFORMATION
  Report Type: Spontaneous
  Country: US (occurrence: US)
  Receive Date: 20210120
  Receipt Date: 20210120
  Transmission Date: 20210419
  Serious: No
  Sender: FDA-Public Use
  Company Number: US-GW PHARMA-202101USGW00105

PATIENT

DRUGS (1)
  1. EPIDIOLEX [Suspect]
     Active Substance: CANNABIDIOL
     Indication: PRODUCT USED FOR UNKNOWN INDICATION
     Dosage: HIGH DOSE, TAKES ABOUT A SHOT GLASS FULL TWICE A DAY
     Route: 048

REACTIONS (2)
  - Petit mal epilepsy [Unknown]
  - Growth retardation [Unknown]
